FAERS Safety Report 5084327-9 (Version None)
Quarter: 2006Q3

REPORT INFORMATION
  Report Type: 
  Country: None (occurrence: None)
  Receive Date: 20060817
  Receipt Date: 20060817
  Transmission Date: 20061208
  Serious: Yes (Other)
  Sender: FDA-Public Use
  Company Number: None

PATIENT
  Age: 36 Year
  Sex: Female

DRUGS (1)
  1. CAPOTEN [Suspect]
     Indication: HYPERTENSION
     Dosage: 6.25MG PO   X1
     Route: 048
     Dates: start: 20060814

REACTIONS (3)
  - PRURITUS [None]
  - RASH [None]
  - URTICARIA [None]
